FAERS Safety Report 15588986 (Version 1)
Quarter: 2018Q4

REPORT INFORMATION
  Report Type: Spontaneous
  Country: DE (occurrence: DE)
  Receive Date: 20181106
  Receipt Date: 20181106
  Transmission Date: 20190205
  Serious: Yes (Other)
  Sender: FDA-Public Use
  Company Number: DE-AUROBINDO-AUR-APL-2018-053684

PATIENT
  Age: 50 Year
  Sex: Female
  Weight: 130 kg

DRUGS (2)
  1. CEFUROXIME. [Suspect]
     Active Substance: CEFUROXIME
     Indication: CAESAREAN SECTION
     Dosage: UNKNOWN ()
     Route: 042
     Dates: start: 2007
  2. BUPIVACAINE. [Suspect]
     Active Substance: BUPIVACAINE
     Indication: CAESAREAN SECTION
     Dosage: UNK
     Route: 065
     Dates: start: 2007

REACTIONS (3)
  - Asthenia [Recovering/Resolving]
  - Drug hypersensitivity [Recovered/Resolved with Sequelae]
  - Fatigue [Not Recovered/Not Resolved]

NARRATIVE: CASE EVENT DATE: 2007
